FAERS Safety Report 9664636 (Version 1)
Quarter: 2013Q4

REPORT INFORMATION
  Report Type: Spontaneous
  Country: US (occurrence: None)
  Receive Date: 20131031
  Receipt Date: 20131031
  Transmission Date: 20140711
  Serious: Yes (Disabling, Other)
  Sender: FDA-Public Use
  Company Number: None

PATIENT
  Age: 40 Year
  Sex: Female
  Weight: 74.84 kg

DRUGS (2)
  1. LUPRON DEPOT 3.75 MG [Suspect]
     Indication: ENDOMETRIOSIS
     Dosage: INJECTION INTO THE MUSCLE
     Dates: start: 20131025
  2. LUPRON DEPOT 3.75 MG [Suspect]
     Indication: AMENORRHOEA
     Dosage: INJECTION INTO THE MUSCLE
     Dates: start: 20131025

REACTIONS (16)
  - Fatigue [None]
  - Dizziness [None]
  - Vision blurred [None]
  - Anger [None]
  - Nervousness [None]
  - Mood swings [None]
  - Psychomotor hyperactivity [None]
  - Pain [None]
  - Tremor [None]
  - Nausea [None]
  - Panic attack [None]
  - Pelvic pain [None]
  - Toothache [None]
  - Blood pressure increased [None]
  - Impaired work ability [None]
  - Distractibility [None]
